FAERS Safety Report 16136911 (Version 1)
Quarter: 2019Q2

REPORT INFORMATION
  Report Type: Spontaneous
  Country: BE (occurrence: BE)
  Receive Date: 20190401
  Receipt Date: 20190401
  Transmission Date: 20190711
  Serious: Yes (Hospitalization, Other)
  Sender: FDA-Public Use
  Company Number: BE-ACCORD-117295

PATIENT
  Age: 74 Year
  Sex: Female

DRUGS (7)
  1. FLUOROURACIL. [Suspect]
     Active Substance: FLUOROURACIL
     Indication: ADENOCARCINOMA OF COLON
     Dosage: 1000 MG/M2 12 CYCLES
     Route: 041
  2. LEUCOVORIN. [Suspect]
     Active Substance: LEUCOVORIN
     Indication: ADENOCARCINOMA OF COLON
     Dosage: 200 MG/M2  12 CYCLES
     Route: 041
  3. ATORVASTATIN [Concomitant]
     Active Substance: ATORVASTATIN
     Indication: HYPERCHOLESTEROLAEMIA
     Route: 065
  4. CANDESARTAN. [Concomitant]
     Active Substance: CANDESARTAN
     Indication: ESSENTIAL HYPERTENSION
     Route: 065
  5. LEVOTHYROXINE. [Concomitant]
     Active Substance: LEVOTHYROXINE
     Indication: HYPOTHYROIDISM
     Route: 065
  6. OXALIPLATIN. [Suspect]
     Active Substance: OXALIPLATIN
     Indication: ADENOCARCINOMA OF COLON
     Dosage: 85 MG/M2 12 CYCLES
     Route: 041
  7. AMLODIPINE [Concomitant]
     Active Substance: AMLODIPINE BESYLATE
     Indication: ESSENTIAL HYPERTENSION
     Route: 065

REACTIONS (8)
  - Obliterative bronchiolitis [Recovered/Resolved]
  - General physical health deterioration [Recovered/Resolved]
  - Rales [Recovered/Resolved]
  - Cough [Recovered/Resolved]
  - Pyrexia [Recovered/Resolved]
  - Dyspnoea exertional [Recovered/Resolved]
  - Organising pneumonia [Recovering/Resolving]
  - Interstitial lung disease [Recovered/Resolved]
